FAERS Safety Report 5189871-1 (Version None)
Quarter: 2006Q4

REPORT INFORMATION
  Report Type: 
  Country: None (occurrence: None)
  Receive Date: 20061215
  Receipt Date: 20061205
  Transmission Date: 20070319
  Serious: Yes (Hospitalization)
  Sender: FDA-Public Use
  Company Number: 2006150833

PATIENT
  Age: 48 Year
  Sex: Male
  Weight: 71 kg

DRUGS (5)
  1. SUTENT [Suspect]
     Indication: RENAL CELL CARCINOMA STAGE UNSPECIFIED
     Dosage: 50 MG (50 MG, 4 WEEKS ON/2 WEEKS OFF), ORAL
     Route: 048
     Dates: start: 20060929
  2. PANTOPRAZOLE SODIUM [Concomitant]
  3. HYDROMORPHONE HCL [Concomitant]
  4. ZOLPIDEM TARTRATE [Concomitant]
  5. DULOXETINE HYDROCHLORIDE (DULOXETINE HYDROCHLORIDE) [Concomitant]

REACTIONS (2)
  - CONFUSIONAL STATE [None]
  - ENCEPHALOPATHY [None]
